FAERS Safety Report 16191222 (Version 2)
Quarter: 2019Q2

REPORT INFORMATION
  Report Type: Report from Study
  Country: US (occurrence: US)
  Receive Date: 20190412
  Receipt Date: 20190516
  Transmission Date: 20190711
  Serious: Yes (Death, Hospitalization)
  Sender: FDA-Public Use
  Company Number: US-ACTELION-A-NJ2019-188862

PATIENT
  Age: 66 Year
  Sex: Female

DRUGS (9)
  1. ENALAPRIL [Concomitant]
     Active Substance: ENALAPRIL
  2. TRACLEER [Suspect]
     Active Substance: BOSENTAN
     Indication: PULMONARY HYPERTENSION
     Dosage: 125 MG
     Route: 048
     Dates: start: 20120919
  3. LISINOPRIL. [Concomitant]
     Active Substance: LISINOPRIL
  4. LOSARTAN. [Concomitant]
     Active Substance: LOSARTAN
  5. NIFEDIPINE. [Concomitant]
     Active Substance: NIFEDIPINE
  6. MINOXIDIL. [Concomitant]
     Active Substance: MINOXIDIL
  7. CLONIDINE. [Concomitant]
     Active Substance: CLONIDINE
  8. METOPROLOL. [Concomitant]
     Active Substance: METOPROLOL
  9. HYDRALAZINE [Concomitant]
     Active Substance: HYDRALAZINE HYDROCHLORIDE

REACTIONS (2)
  - Death [Fatal]
  - Myocardial infarction [Recovered/Resolved]

NARRATIVE: CASE EVENT DATE: 20190322
